FAERS Safety Report 10646153 (Version 1)
Quarter: 2014Q4

REPORT INFORMATION
  Report Type: Spontaneous
  Country: DE (occurrence: None)
  Receive Date: 20141209
  Receipt Date: 20141209
  Transmission Date: 20150529
  Serious: Yes (Other)
  Sender: FDA-Public Use
  Company Number: IPC201411-000609

PATIENT
  Sex: Female
  Weight: 82 kg

DRUGS (1)
  1. METFORMIN HYDROCHLORIDE 500 MG TABLETS (METFORMIN HYDROCHLORIDE) (METFORMIN HYDROCHLORIDE) [Suspect]
     Active Substance: METFORMIN HYDROCHLORIDE
     Route: 048

REACTIONS (2)
  - Hypoaesthesia oral [None]
  - Product odour abnormal [None]
